FAERS Safety Report 25819381 (Version 2)
Quarter: 2025Q3

REPORT INFORMATION
  Report Type: Spontaneous
  Country: US (occurrence: US)
  Receive Date: 20250918
  Receipt Date: 20250923
  Transmission Date: 20251021
  Serious: Yes (Hospitalization)
  Sender: SANOFI AVENTIS
  Company Number: US-SA-2025SA278820

PATIENT
  Age: 2 Year
  Sex: Male

DRUGS (6)
  1. ELOCTATE [Suspect]
     Active Substance: EFMOROCTOCOG ALFA
     Route: 042
  2. ELOCTATE [Suspect]
     Active Substance: EFMOROCTOCOG ALFA
     Route: 042
  3. ELOCTATE [Suspect]
     Active Substance: EFMOROCTOCOG ALFA
     Dosage: 650 UNITS (+/-10%) EVERY 24 HOURS POST SURGERY (POST-OP DAY 2 THROUGH 5 = 9/13, 9/14, 9/15, 9/16)
     Route: 042
     Dates: start: 202509
  4. ELOCTATE [Suspect]
     Active Substance: EFMOROCTOCOG ALFA
     Dosage: 650 UNITS (+/-10%) EVERY 24 HOURS POST SURGERY (POST-OP DAY 2 THROUGH 5 = 9/13, 9/14, 9/15, 9/16)
     Route: 042
     Dates: start: 202509
  5. ELOCTATE [Suspect]
     Active Substance: EFMOROCTOCOG ALFA
     Route: 042
     Dates: start: 202509
  6. ELOCTATE [Suspect]
     Active Substance: EFMOROCTOCOG ALFA
     Route: 042
     Dates: start: 202509

REACTIONS (5)
  - Tonsillectomy [Unknown]
  - Infusion site extravasation [Unknown]
  - Pyrexia [Unknown]
  - Fluid intake reduced [Unknown]
  - Incision site swelling [Unknown]

NARRATIVE: CASE EVENT DATE: 20250912
